FAERS Safety Report 14504280 (Version 1)
Quarter: 2018Q1

REPORT INFORMATION
  Report Type: Spontaneous
  Country: CA (occurrence: US)
  Receive Date: 20180208
  Receipt Date: 20180208
  Transmission Date: 20180509
  Serious: No
  Sender: FDA-Public Use
  Company Number: CA-JNJFOC-20171206745

PATIENT
  Age: 81 Year
  Sex: Male
  Weight: 63.5 kg

DRUGS (2)
  1. TYLENOL 8 HR ARTHRITIS PAIN [Suspect]
     Active Substance: ACETAMINOPHEN
     Route: 065
  2. TYLENOL 8 HR ARTHRITIS PAIN [Suspect]
     Active Substance: ACETAMINOPHEN
     Indication: ARTHRITIS
     Dosage: FOR ABOUT 4 MONTHS
     Route: 065

REACTIONS (2)
  - Drug administration error [Unknown]
  - Inappropriate schedule of drug administration [Unknown]
